FAERS Safety Report 13988847 (Version 1)
Quarter: 2017Q3

REPORT INFORMATION
  Report Type: Spontaneous
  Country: US (occurrence: US)
  Receive Date: 20170919
  Receipt Date: 20170919
  Transmission Date: 20171128
  Serious: Yes (Other)
  Sender: FDA-Public Use
  Company Number: None

PATIENT
  Age: 48 Year
  Sex: Female
  Weight: 64.35 kg

DRUGS (5)
  1. AUGMENTIN [Concomitant]
     Active Substance: AMOXICILLIN\CLAVULANATE POTASSIUM
  2. SUDAFED [Concomitant]
     Active Substance: PSEUDOEPHEDRINE HYDROCHLORIDE
  3. 24 HOUR ALLERGY RELIEF NASAL [Suspect]
     Active Substance: FLUTICASONE PROPIONATE
     Indication: SINUS CONGESTION
     Dosage: ?          QUANTITY:1 SPRAY(S);OTHER ROUTE:SPRAY IN EACH NOSTRIL?
     Route: 045
     Dates: start: 20170911, end: 20170914
  4. ZYRTEK [Concomitant]
     Active Substance: CETIRIZINE HYDROCHLORIDE
  5. VITAFUSION WOMEN^S ADULT VITAMINS [Concomitant]

REACTIONS (9)
  - Throat tightness [None]
  - Oropharyngeal blistering [None]
  - Chemical burn [None]
  - Tongue blistering [None]
  - Oropharyngeal pain [None]
  - Eating disorder [None]
  - Pharyngeal oedema [None]
  - Ageusia [None]
  - Swollen tongue [None]

NARRATIVE: CASE EVENT DATE: 20170911
